FAERS Safety Report 8524652 (Version 3)
Quarter: 2013Q3

REPORT INFORMATION
  Report Type: Report from Study
  Country: JP (occurrence: JP)
  Receive Date: 20120422
  Receipt Date: 20130912
  Transmission Date: 20140515
  Serious: Yes (Other)
  Sender: FDA-Public Use
  Company Number: JP-VERTEX PHARMACEUTICALS INC.-AE-2012-005503

PATIENT
  Age: 73 Year
  Sex: Female

DRUGS (7)
  1. VX-950 (TELAPREVIR) [Suspect]
     Indication: CHRONIC HEPATITIS C
     Dosage: 2250 MG, TID
     Route: 048
     Dates: start: 20120319, end: 20120404
  2. VX-950 (TELAPREVIR) [Suspect]
     Dosage: 1500 MG, TID
     Route: 048
     Dates: start: 20120405, end: 20120607
  3. PEGINTERFERON ALFA-2B [Suspect]
     Indication: CHRONIC HEPATITIS C
     Dosage: 1.5 ?G/KG, QW
     Route: 058
     Dates: start: 20120319, end: 20120906
  4. RIBAVIRIN [Suspect]
     Indication: CHRONIC HEPATITIS C
     Dosage: 400 MG, QD
     Route: 048
     Dates: start: 20120319, end: 20120328
  5. RIBAVIRIN [Suspect]
     Dosage: 200 MG, QD
     Route: 048
     Dates: start: 20120329, end: 20120620
  6. RIBAVIRIN [Suspect]
     Dosage: 400 MG, QD
     Route: 048
     Dates: start: 20120621, end: 20120903
  7. URSO [Concomitant]
     Dosage: 600 MG, QD
     Route: 048

REACTIONS (1)
  - Neutrophil count decreased [Not Recovered/Not Resolved]
